FAERS Safety Report 5600952-8 (Version None)
Quarter: 2008Q1

REPORT INFORMATION
  Report Type: 
  Country: None (occurrence: None)
  Receive Date: 20080124
  Receipt Date: 20080116
  Transmission Date: 20080703
  Serious: Yes (Other)
  Sender: FDA-Public Use
  Company Number: PHHY2008JP00749

PATIENT
  Age: 70 Year
  Sex: Female

DRUGS (2)
  1. ZOMETA [Suspect]
     Route: 042
     Dates: start: 20060701
  2. AREDIA [Suspect]
     Route: 042
     Dates: start: 20040601

REACTIONS (1)
  - OSTEONECROSIS [None]
